FAERS Safety Report 19931502 (Version 4)
Quarter: 2022Q4

REPORT INFORMATION
  Report Type: Spontaneous
  Country: CZ (occurrence: CZ)
  Receive Date: 20211007
  Receipt Date: 20221224
  Transmission Date: 20230113
  Serious: Yes (Hospitalization, Disabling, Other)
  Sender: FDA-Public Use
  Company Number: CZ-NOVARTISPH-NVSC2020CZ360407

PATIENT
  Age: 86 Year
  Sex: Female

DRUGS (41)
  1. METHOTREXATE SODIUM [Interacting]
     Active Substance: METHOTREXATE SODIUM
     Indication: Rheumatoid arthritis
     Dosage: 10 MG, QW 1-0-0 (SUNDAY)
     Route: 048
     Dates: start: 2010
  2. TRAMADOL HYDROCHLORIDE [Suspect]
     Active Substance: TRAMADOL HYDROCHLORIDE
     Indication: Product used for unknown indication
     Dosage: UNK
     Route: 065
  3. OMEPRAZOLE [Interacting]
     Active Substance: OMEPRAZOLE
     Indication: Product used for unknown indication
     Dosage: UNK
     Route: 065
  4. PREGABALIN [Interacting]
     Active Substance: PREGABALIN
     Indication: Post herpetic neuralgia
     Dosage: UNK
     Route: 065
  5. DONEPEZIL HYDROCHLORIDE [Interacting]
     Active Substance: DONEPEZIL HYDROCHLORIDE
     Indication: Product used for unknown indication
     Dosage: UNK
     Route: 065
  6. RAMIPRIL [Interacting]
     Active Substance: RAMIPRIL
     Indication: Product used for unknown indication
     Dosage: UNK
     Route: 065
  7. OXAZEPAM [Interacting]
     Active Substance: OXAZEPAM
     Indication: Product used for unknown indication
     Dosage: UNK
     Route: 065
  8. PREDNISONE [Interacting]
     Active Substance: PREDNISONE
     Indication: Steroid therapy
     Dosage: 5 MG, QD (1-0-0)
     Route: 048
  9. IBUPROFEN [Interacting]
     Active Substance: IBUPROFEN
     Indication: Pain
     Dosage: UNK
     Route: 065
  10. ZOLPIDEM TARTRATE [Interacting]
     Active Substance: ZOLPIDEM TARTRATE
     Indication: Product used for unknown indication
     Dosage: UNK
     Route: 065
  11. ZOLPIDEM TARTRATE [Interacting]
     Active Substance: ZOLPIDEM TARTRATE
     Indication: Product used for unknown indication
     Dosage: UNK
     Route: 065
  12. CORDARONE [Interacting]
     Active Substance: AMIODARONE HYDROCHLORIDE
     Indication: Atrial fibrillation
     Dosage: 200 MG, QD (1-0-0)
     Route: 048
  13. SODIUM PICOSULFATE [Interacting]
     Active Substance: SODIUM PICOSULFATE
     Indication: Constipation
     Dosage: 1 DF
     Route: 065
  14. SODIUM PICOSULFATE [Interacting]
     Active Substance: SODIUM PICOSULFATE
     Dosage: UNK, QD, 10-20 GTTIN THE EVENING  DROPS
     Route: 065
  15. METAMIZOLE [Interacting]
     Active Substance: METAMIZOLE
     Indication: Hypertension
     Dosage: 500 MG, Q12H, 1-0-1
     Route: 065
  16. ROSUVASTATIN CALCIUM [Interacting]
     Active Substance: ROSUVASTATIN CALCIUM
     Indication: Product used for unknown indication
     Dosage: 20 MG, QD, 0-0-1
     Route: 048
  17. FENTANYL [Interacting]
     Active Substance: FENTANYL
     Indication: Post herpetic neuralgia
     Dosage: 25 UG/H EVERY 72 HOURS
     Route: 062
     Dates: start: 2015
  18. FENTANYL [Interacting]
     Active Substance: FENTANYL
     Indication: Pain
  19. PANADOL [Interacting]
     Active Substance: ACETAMINOPHEN
     Indication: Pain
     Dosage: 750 MG, QD, 1.5 TABLETS 3-4 TIMES A DAY
     Route: 048
     Dates: start: 2015
  20. FOLIC ACID [Interacting]
     Active Substance: FOLIC ACID
     Indication: Product used for unknown indication
     Dosage: 1 DF, QD (1-0-0 ON MONDAY)
     Route: 048
  21. ELIQUIS [Interacting]
     Active Substance: APIXABAN
     Indication: Anticoagulant therapy
     Dosage: 5 MG, BID, 1-0-1
     Route: 065
  22. AMLODIPINE BESYLATE [Interacting]
     Active Substance: AMLODIPINE BESYLATE
     Indication: Hypertension
     Dosage: 5 MG, QD, 1-0-0
     Route: 048
  23. CALCIUM\CHOLECALCIFEROL [Interacting]
     Active Substance: CALCIUM\CHOLECALCIFEROL
     Indication: Calcium deficiency
     Dosage: 1 DF, QD, 0-0-1
     Route: 048
  24. SODIUM CHONDROITIN SULFATE [Interacting]
     Active Substance: SODIUM CHONDROITIN SULFATE
     Indication: Rheumatoid arthritis
     Dosage: 800 MG, QD (IN THE EVENING), 0-0-1
     Route: 048
  25. CONTROLOC [Interacting]
     Active Substance: PANTOPRAZOLE SODIUM
     Indication: Nausea
     Dosage: 20 MG, QD, 1-0-0
     Route: 048
  26. MELOXICAM [Interacting]
     Active Substance: MELOXICAM
     Indication: Post herpetic neuralgia
     Dosage: 1 DF, QW
     Route: 065
     Dates: start: 2015
  27. MELOXICAM [Interacting]
     Active Substance: MELOXICAM
     Indication: Pain
     Dosage: 15 MG TAKEN APPROX. 3 TIMES PER WEEK
     Route: 065
     Dates: start: 2015
  28. EUTHYROX [Interacting]
     Active Substance: LEVOTHYROXINE SODIUM
     Indication: Autoimmune thyroiditis
     Dosage: 100 UG, QD, 1-0-0 EXCEPT SUNDAY
     Route: 048
  29. EUTHYROX [Interacting]
     Active Substance: LEVOTHYROXINE SODIUM
     Indication: Hypothyroidism
  30. TELMISARTAN [Interacting]
     Active Substance: TELMISARTAN
     Indication: Hypertension
     Dosage: 1 DF, QD, 1-0-0
     Route: 065
  31. MAGNESIUM ASPARTATE\POTASSIUM ASPARTATE [Interacting]
     Active Substance: MAGNESIUM ASPARTATE\POTASSIUM ASPARTATE
     Indication: Product used for unknown indication
     Dosage: 1 DF, QD, 0-1-0
     Route: 048
  32. METAMIZOLE [Interacting]
     Active Substance: METAMIZOLE
     Indication: Post herpetic neuralgia
     Dosage: 500 MG, QD, 1-0-1
     Route: 048
     Dates: start: 2015
  33. POTASSIUM ASPARTATE [Interacting]
     Active Substance: POTASSIUM ASPARTATE
     Indication: Product used for unknown indication
     Dosage: UNK
     Route: 065
  34. METOPROLOL [Interacting]
     Active Substance: METOPROLOL
     Indication: Hypertension
     Dosage: 25 MG, QD, 1-0-0
     Route: 048
  35. MAGNESIUM ASPARTATE [Suspect]
     Active Substance: MAGNESIUM ASPARTATE
     Indication: Product used for unknown indication
     Dosage: UNK
     Route: 065
  36. CAPTOPRIL [Suspect]
     Active Substance: CAPTOPRIL
     Indication: Hypertension
     Dosage: UNK
     Route: 065
  37. GUAIFENESIN [Suspect]
     Active Substance: GUAIFENESIN
     Indication: Product used for unknown indication
     Dosage: UNK
     Route: 065
  38. TRAZODONE [Suspect]
     Active Substance: TRAZODONE HYDROCHLORIDE
     Indication: Product used for unknown indication
     Dosage: UNK
     Route: 065
  39. ALPRAZOLAM [Suspect]
     Active Substance: ALPRAZOLAM
     Indication: Hypertension
     Dosage: UNK
     Route: 065
  40. FENTANYL [Suspect]
     Active Substance: FENTANYL
     Indication: Product used for unknown indication
     Dosage: UNK
     Route: 065
  41. NICOFURANOSE [Suspect]
     Active Substance: NICOFURANOSE
     Indication: Encephalopathy
     Dosage: UNK, QD, 0-1-0
     Route: 048

REACTIONS (37)
  - Fall [Recovered/Resolved]
  - Pelvic fracture [Recovering/Resolving]
  - Cognitive disorder [Recovered/Resolved]
  - Head discomfort [Recovered/Resolved]
  - Nausea [Recovered/Resolved]
  - Vertigo [Recovered/Resolved]
  - Confusional state [Recovered/Resolved]
  - Delirium [Recovered/Resolved]
  - Hypokalaemia [Recovered/Resolved]
  - Atrial fibrillation [Recovered/Resolved]
  - Hyponatraemia [Recovered/Resolved]
  - Apathy [Recovered/Resolved]
  - Urinary retention [Recovered/Resolved]
  - Liver function test increased [Recovered/Resolved]
  - Listless [Recovering/Resolving]
  - Oxygen saturation decreased [Recovered/Resolved]
  - Hypertension [Recovering/Resolving]
  - Drug abuse [Recovering/Resolving]
  - Deafness [Recovering/Resolving]
  - Discomfort [Recovered/Resolved]
  - Dehydration [Recovered/Resolved]
  - Condition aggravated [Recovered/Resolved]
  - Loss of personal independence in daily activities [Recovered/Resolved]
  - General physical health deterioration [Recovering/Resolving]
  - Anxiety [Recovered/Resolved]
  - Drug interaction [Recovered/Resolved]
  - Encephalopathy [Recovering/Resolving]
  - Restlessness [Recovering/Resolving]
  - Intentional overdose [Recovering/Resolving]
  - Sleep disorder [Recovering/Resolving]
  - Hypoacusis [Recovering/Resolving]
  - Intentional product misuse [Unknown]
  - Concomitant disease aggravated [Recovering/Resolving]
  - Reduced facial expression [Recovered/Resolved]
  - Mobility decreased [Recovered/Resolved]
  - Affect lability [Recovered/Resolved]
  - Incorrect dose administered [Unknown]

NARRATIVE: CASE EVENT DATE: 20180101
